FAERS Safety Report 11272046 (Version 1)
Quarter: 2015Q3

REPORT INFORMATION
  Report Type: Spontaneous
  Country: US (occurrence: None)
  Receive Date: 20150713
  Receipt Date: 20150713
  Transmission Date: 20151125
  Serious: No
  Sender: FDA-Public Use
  Company Number: None

PATIENT
  Age: 25 Year
  Sex: Female
  Weight: 113.4 kg

DRUGS (7)
  1. NOVOLOG [Concomitant]
     Active Substance: INSULIN ASPART
  2. NORTRIPTYLINE [Concomitant]
     Active Substance: NORTRIPTYLINE
  3. KEPPRA [Concomitant]
     Active Substance: LEVETIRACETAM
  4. ALBUTEROL. [Concomitant]
     Active Substance: ALBUTEROL
  5. BENTYL [Suspect]
     Active Substance: DICYCLOMINE HYDROCHLORIDE
     Indication: VOMITING
     Route: 048
     Dates: start: 20150707, end: 20150710
  6. OMEPRAZOLE. [Concomitant]
     Active Substance: OMEPRAZOLE
  7. MEDTRONIC INSULIN PUMP [Concomitant]

REACTIONS (2)
  - Blood pressure increased [None]
  - Blood glucose increased [None]

NARRATIVE: CASE EVENT DATE: 20150707
